FAERS Safety Report 22045695 (Version 2)
Quarter: 2023Q2

REPORT INFORMATION
  Report Type: Spontaneous
  Country: ZA (occurrence: ZA)
  Receive Date: 20230228
  Receipt Date: 20230428
  Transmission Date: 20230722
  Serious: Yes (Other)
  Sender: FDA-Public Use
  Company Number: ZA-BAYER-2023A022337

PATIENT
  Age: 63 Year
  Sex: Male

DRUGS (1)
  1. GADOBUTROL [Suspect]
     Active Substance: GADOBUTROL
     Indication: Magnetic resonance imaging pelvic
     Dosage: 15 ML, ONCE
     Dates: start: 20230221, end: 20230221

REACTIONS (6)
  - Urinary incontinence [None]
  - Pallor [None]
  - Cold sweat [None]
  - Lip swelling [None]
  - Lip erythema [None]
  - Pruritus [None]

NARRATIVE: CASE EVENT DATE: 20230221
